FAERS Safety Report 5766499-3 (Version None)
Quarter: 2008Q2

REPORT INFORMATION
  Report Type: 
  Country: None (occurrence: None)
  Receive Date: 20080606
  Receipt Date: 20080529
  Transmission Date: 20081010
  Serious: Yes (Hospitalization)
  Sender: FDA-Public Use
  Company Number: PHHY2008ES08953

PATIENT
  Age: 65 Year
  Sex: Male

DRUGS (6)
  1. TEGRETOL [Suspect]
     Indication: EPILEPSY
     Dosage: 600 MG/DAY, ORAL
     Route: 048
  2. AMOXICILLIN [Suspect]
     Indication: BRONCHITIS
     Dosage: 1500 MG/DAY, ORAL
     Route: 048
     Dates: start: 20080209, end: 20080216
  3. ATENOLOL [Concomitant]
  4. AMBROXOL (AMBROXOL) [Concomitant]
  5. ATROVENT [Concomitant]
  6. TAMSULOSIN HYDROCHLORIDE (TAMSULOSIN HYDROCHLORIDE) [Concomitant]

REACTIONS (2)
  - DRUG INTERACTION [None]
  - IDIOPATHIC THROMBOCYTOPENIC PURPURA [None]
